FAERS Safety Report 10144647 (Version 1)
Quarter: 2014Q2

REPORT INFORMATION
  Report Type: Spontaneous
  Country: US (occurrence: US)
  Receive Date: 20140430
  Receipt Date: 20140430
  Transmission Date: 20141212
  Serious: Yes (Other)
  Sender: FDA-Public Use
  Company Number: US-SA-2013SA111920

PATIENT
  Age: 67 Year
  Sex: Female

DRUGS (2)
  1. ENOXAPARIN SODIUM - WINTHROP [Suspect]
     Indication: PULMONARY EMBOLISM
     Route: 065
  2. OTHER CHEMOTHERAPEUTICS [Concomitant]

REACTIONS (9)
  - Epistaxis [Not Recovered/Not Resolved]
  - Haemorrhage [Unknown]
  - Injection site bruising [Not Recovered/Not Resolved]
  - Injection site nodule [Not Recovered/Not Resolved]
  - Injection site pain [Not Recovered/Not Resolved]
  - Haemoglobin decreased [Unknown]
  - Pruritus [Unknown]
  - Scratch [Unknown]
  - Drug administered at inappropriate site [Unknown]
